FAERS Safety Report 6068981-0 (Version None)
Quarter: 2009Q1

REPORT INFORMATION
  Report Type: 
  Country: None (occurrence: None)
  Receive Date: 20090206
  Receipt Date: 20090204
  Transmission Date: 20090719
  Serious: Yes (Other)
  Sender: FDA-Public Use
  Company Number: US-MERCK-0902USA00513

PATIENT
  Age: 75 Year
  Sex: Female
  Weight: 57 kg

DRUGS (3)
  1. VYTORIN [Suspect]
     Indication: BLOOD CHOLESTEROL
     Route: 048
  2. LUBRIDERM BATH AND SHOWER OIL [Suspect]
     Indication: DRY SKIN
     Route: 061
     Dates: end: 20090119
  3. VITAMINS (UNSPECIFIED) [Concomitant]
     Indication: MEDICAL DIET
     Route: 048

REACTIONS (7)
  - APPLICATION SITE REACTION [None]
  - CONDITION AGGRAVATED [None]
  - ERYTHEMA [None]
  - EYE IRRITATION [None]
  - EYE SWELLING [None]
  - PAIN [None]
  - THERMAL BURN [None]
